FAERS Safety Report 7358366-9 (Version None)
Quarter: 2011Q1

REPORT INFORMATION
  Report Type: 
  Country: None (occurrence: None)
  Receive Date: 20110307
  Receipt Date: 20100211
  Transmission Date: 20110831
  Serious: No
  Sender: FDA-Public Use
  Company Number: AEUSA201000050

PATIENT
  Age: 48 Year
  Sex: Female
  Weight: 65.7716 kg

DRUGS (7)
  1. SINGULAIR /01362602/ [Concomitant]
  2. OXYBUTYNIN [Concomitant]
  3. ADVAIR DISKUS 100/50 [Concomitant]
  4. BENADRYL [Concomitant]
  5. PROLASTIN [Suspect]
     Indication: ALPHA-1 ANTI-TRYPSIN DEFICIENCY
     Dosage: 240 MG/KG;QM;IV
     Route: 042
     Dates: start: 20040101
  6. CLARITIN /00917501/ [Concomitant]
  7. PREVACID [Concomitant]

REACTIONS (1)
  - URTICARIA [None]
